FAERS Safety Report 7609480-1 (Version None)
Quarter: 2011Q3

REPORT INFORMATION
  Report Type: 
  Country: None (occurrence: None)
  Receive Date: 20110714
  Receipt Date: 20110707
  Transmission Date: 20111222
  Serious: Yes (Disabling)
  Sender: FDA-Public Use
  Company Number: CH-PFIZER INC-2011152349

PATIENT
  Sex: Male

DRUGS (1)
  1. EFFEXOR XR [Suspect]
     Dosage: UNK
     Route: 048
     Dates: start: 20090101, end: 20100820

REACTIONS (57)
  - LYMPH NODE PAIN [None]
  - EAR DISCOMFORT [None]
  - ERYTHEMA [None]
  - EYE INFLAMMATION [None]
  - LOSS OF LIBIDO [None]
  - SOCIAL AVOIDANT BEHAVIOUR [None]
  - COORDINATION ABNORMAL [None]
  - DECREASED APPETITE [None]
  - WEIGHT DECREASED [None]
  - LACRIMATION INCREASED [None]
  - HOT FLUSH [None]
  - OROPHARYNGEAL PAIN [None]
  - EYE DISORDER [None]
  - NAUSEA [None]
  - HYPOAESTHESIA [None]
  - GAZE PALSY [None]
  - DEREALISATION [None]
  - TINNITUS [None]
  - EAR PAIN [None]
  - INFLUENZA [None]
  - HERPES VIRUS INFECTION [None]
  - PARAESTHESIA [None]
  - HYPERHIDROSIS [None]
  - ANXIETY [None]
  - PARAESTHESIA ORAL [None]
  - HEADACHE [None]
  - PARANASAL SINUS DISCOMFORT [None]
  - TOOTHACHE [None]
  - MYDRIASIS [None]
  - VERTIGO [None]
  - DEPERSONALISATION [None]
  - PANIC DISORDER [None]
  - DISTURBANCE IN ATTENTION [None]
  - PRURITUS GENERALISED [None]
  - THINKING ABNORMAL [None]
  - GROIN PAIN [None]
  - PAIN IN JAW [None]
  - MUCOSAL INFLAMMATION [None]
  - DIARRHOEA [None]
  - EYE IRRITATION [None]
  - FEELING COLD [None]
  - MASKED FACIES [None]
  - TACHYCARDIA [None]
  - AGITATION [None]
  - AXILLARY PAIN [None]
  - INSOMNIA [None]
  - DEPRESSION [None]
  - MEMORY IMPAIRMENT [None]
  - DISORIENTATION [None]
  - VISUAL IMPAIRMENT [None]
  - WITHDRAWAL SYNDROME [None]
  - OCULAR HYPERAEMIA [None]
  - STOMATITIS [None]
  - TREMOR [None]
  - ASTHENIA [None]
  - GAIT DISTURBANCE [None]
  - DYSGEUSIA [None]
